FAERS Safety Report 6180616-5 (Version None)
Quarter: 2009Q2

REPORT INFORMATION
  Report Type: 
  Country: None (occurrence: None)
  Receive Date: 20090506
  Receipt Date: 20090427
  Transmission Date: 20091009
  Serious: Yes (Hospitalization)
  Sender: FDA-Public Use
  Company Number: PHHY2009JP16135

PATIENT
  Age: 65 Year
  Sex: Female

DRUGS (4)
  1. VOLTAREN [Suspect]
     Indication: LUMBAR SPINAL STENOSIS
     Dosage: UNK
     Route: 054
     Dates: start: 20090426
  2. OLMETEC [Concomitant]
  3. CINALONG [Concomitant]
  4. ALOSENN [Concomitant]

REACTIONS (6)
  - BLOOD PRESSURE DECREASED [None]
  - BODY TEMPERATURE INCREASED [None]
  - DEPRESSED LEVEL OF CONSCIOUSNESS [None]
  - DIZZINESS [None]
  - GENERALISED ERYTHEMA [None]
  - SHOCK [None]
